FAERS Safety Report 4615679-9 (Version None)
Quarter: 2005Q1

REPORT INFORMATION
  Report Type: 
  Country: None (occurrence: None)
  Receive Date: 20050317
  Receipt Date: 20030311
  Transmission Date: 20050727
  Serious: Yes (Hospitalization, Other)
  Sender: FDA-Public Use
  Company Number: 26371

PATIENT
  Sex: Male

DRUGS (1)
  1. ALDARA [Suspect]
     Indication: MOLLUSCUM CONTAGIOSUM
     Dosage: UNK, ^AS DIRECTED^), TOPICAL
     Route: 061

REACTIONS (1)
  - FEBRILE CONVULSION [None]
